FAERS Safety Report 14985790 (Version 5)
Quarter: 2019Q1

REPORT INFORMATION
  Report Type: Spontaneous
  Country: IT (occurrence: IT)
  Receive Date: 20180607
  Receipt Date: 20190122
  Transmission Date: 20190417
  Serious: Yes (Hospitalization, Other)
  Sender: FDA-Public Use
  Company Number: IT-MYLANLABS-2018M1037667

PATIENT
  Age: 54 Year
  Sex: Male

DRUGS (17)
  1. OXALIPLATIN. [Suspect]
     Active Substance: OXALIPLATIN
     Indication: COLON CANCER METASTATIC
     Dosage: 85 MG/M2, CYCLIC
     Route: 065
     Dates: start: 20170223
  2. PREDNISONE. [Suspect]
     Active Substance: PREDNISONE
     Indication: LIMBIC ENCEPHALITIS
  3. BEVACIZUMAB. [Suspect]
     Active Substance: BEVACIZUMAB
     Indication: COLON CANCER METASTATIC
     Dosage: 5 MG/KG, CYCLIC (DAY 1, EVERY 14 DAYS)
     Route: 042
     Dates: start: 201706
  4. METHYLPREDNISOLON                  /00049601/ [Suspect]
     Active Substance: METHYLPREDNISOLONE
     Indication: LIMBIC ENCEPHALITIS
  5. FLUOROURACIL. [Suspect]
     Active Substance: FLUOROURACIL
     Dosage: 3200 MG/M2, CYCLE, 46HOURS CONTINUING INFUSION
     Route: 065
     Dates: start: 20170223
  6. OXALIPLATIN. [Suspect]
     Active Substance: OXALIPLATIN
     Dosage: 85 MG/M2, CYCLIC
     Route: 065
     Dates: start: 201706
  7. BEVACIZUMAB. [Suspect]
     Active Substance: BEVACIZUMAB
     Dosage: 5 MG/KG, CYCLIC (DAY 1, EVERY 14 DAYS)
     Route: 042
     Dates: start: 20170223
  8. DENOSUMAB [Concomitant]
     Active Substance: DENOSUMAB
     Indication: LUMBAR VERTEBRAL FRACTURE
     Dosage: UNK
     Route: 065
     Dates: start: 201702
  9. FLUOROURACIL. [Suspect]
     Active Substance: FLUOROURACIL
     Indication: COLON CANCER METASTATIC
     Dosage: 400 MG/M2, CYCLIC
     Route: 040
     Dates: start: 201706
  10. METHYLPREDNISOLON                  /00049601/ [Suspect]
     Active Substance: METHYLPREDNISOLONE
     Indication: IMMUNOSUPPRESSANT DRUG THERAPY
     Dosage: 1 GRAM, QD
     Route: 042
  11. CALCIUM [Concomitant]
     Active Substance: CALCIUM
     Indication: LUMBAR VERTEBRAL FRACTURE
     Dosage: UNK
     Route: 065
     Dates: start: 201702
  12. PREDNISONE. [Suspect]
     Active Substance: PREDNISONE
     Indication: IMMUNOSUPPRESSANT DRUG THERAPY
     Dosage: 25 MG, QD
     Route: 048
  13. FLUOROURACIL. [Suspect]
     Active Substance: FLUOROURACIL
     Indication: COLON CANCER METASTATIC
     Dosage: 2400 MG/M2, CYCLE, 46HOURS CONTINUING INFUSION
     Route: 065
     Dates: start: 201706
  14. FOLINIC ACID [Suspect]
     Active Substance: LEUCOVORIN
     Dosage: 200 MG/M2, CYCLIC
     Route: 065
     Dates: start: 20170223
  15. VITAMIN D                          /00107901/ [Concomitant]
     Active Substance: ERGOCALCIFEROL
     Indication: LUMBAR VERTEBRAL FRACTURE
     Dosage: UNK
     Route: 065
     Dates: start: 201702
  16. FOLINIC ACID [Suspect]
     Active Substance: LEUCOVORIN
     Indication: COLON CANCER METASTATIC
     Dosage: 200 MG/M2, CYCLIC
     Route: 065
     Dates: start: 201706
  17. IRINOTECAN [Concomitant]
     Active Substance: IRINOTECAN
     Indication: COLON CANCER METASTATIC
     Dosage: 165 MG/M2, CYCLIC
     Route: 065
     Dates: start: 20170223

REACTIONS (15)
  - Depressed level of consciousness [Recovering/Resolving]
  - Amnesia [Recovering/Resolving]
  - Lethargy [Recovering/Resolving]
  - Body temperature increased [Recovering/Resolving]
  - Limbic encephalitis [Recovering/Resolving]
  - Disorientation [Recovering/Resolving]
  - Cognitive disorder [Recovering/Resolving]
  - Psychomotor hyperactivity [Recovering/Resolving]
  - Mental status changes [Recovering/Resolving]
  - Sleep disorder [Recovering/Resolving]
  - Therapeutic response decreased [Unknown]
  - Somnolence [Recovering/Resolving]
  - Hallucination [Recovering/Resolving]
  - Speech disorder [Recovering/Resolving]
  - Bradykinesia [Recovering/Resolving]

NARRATIVE: CASE EVENT DATE: 20170403
